FAERS Safety Report 16225558 (Version 1)
Quarter: 2019Q2

REPORT INFORMATION
  Report Type: Spontaneous
  Country: NL (occurrence: NL)
  Receive Date: 20190422
  Receipt Date: 20190422
  Transmission Date: 20190711
  Serious: Yes (Other)
  Sender: FDA-Public Use
  Company Number: NL-TEIKOKU PHARMA USA-TPU2019-00369

PATIENT
  Sex: Male

DRUGS (3)
  1. LIDOCAINE. [Suspect]
     Active Substance: LIDOCAINE
     Indication: PRODUCT USED FOR UNKNOWN INDICATION
     Route: 065
  2. AMITRIPTYLINE HCL [Suspect]
     Active Substance: AMITRIPTYLINE
     Indication: BACK PAIN
  3. AMITRIPTYLINE HCL [Suspect]
     Active Substance: AMITRIPTYLINE
     Indication: MUSCULOSKELETAL PAIN
     Dates: start: 201603

REACTIONS (2)
  - Myocardial infarction [Unknown]
  - Bursitis [Unknown]

NARRATIVE: CASE EVENT DATE: 201611
